FAERS Safety Report 9252221 (Version 3)
Quarter: 2013Q3

REPORT INFORMATION
  Report Type: Spontaneous
  Country: US (occurrence: US)
  Receive Date: 20130424
  Receipt Date: 20130930
  Transmission Date: 20140515
  Serious: Yes (Death, Hospitalization, Disabling, Other)
  Sender: FDA-Public Use
  Company Number: US-ASTRAZENECA-2013SE27442

PATIENT
  Age: 43 Year
  Sex: Male

DRUGS (36)
  1. NEXIUM [Suspect]
     Indication: GASTROOESOPHAGEAL REFLUX DISEASE
     Route: 048
  2. NEXIUM [Suspect]
     Indication: GASTROOESOPHAGEAL REFLUX DISEASE
     Route: 048
     Dates: start: 20030821
  3. NEXIUM [Suspect]
     Indication: GASTROOESOPHAGEAL REFLUX DISEASE
     Route: 048
     Dates: start: 20031219
  4. NEXIUM [Suspect]
     Indication: GASTROOESOPHAGEAL REFLUX DISEASE
     Route: 048
     Dates: start: 20070913
  5. NEXIUM [Suspect]
     Indication: GASTROOESOPHAGEAL REFLUX DISEASE
     Route: 048
     Dates: start: 20091111
  6. PREVACID [Concomitant]
     Dosage: OD
     Route: 048
     Dates: start: 1999, end: 2012
  7. ZANTAC [Concomitant]
     Indication: GASTROOESOPHAGEAL REFLUX DISEASE
     Route: 048
     Dates: start: 1999, end: 2012
  8. ZOCOR [Concomitant]
  9. LISINOPRIL [Concomitant]
     Dates: start: 20110929
  10. FENOFIBRATE [Concomitant]
     Dates: start: 20101230
  11. HYDROXYZINE [Concomitant]
     Dates: start: 20030624
  12. DOXEPIN [Concomitant]
     Dates: start: 20030822
  13. NEURONTIN [Concomitant]
     Dates: start: 20030922
  14. AMBIEN [Concomitant]
     Dates: start: 20031213
  15. ENDOCET [Concomitant]
     Dosage: 5/325 MG
     Dates: start: 20031230
  16. METHADONE [Concomitant]
     Dates: start: 20040112
  17. PROPRANOLOL [Concomitant]
     Dates: start: 20040115
  18. CLONAZEPAM [Concomitant]
     Dates: start: 20040202
  19. AMITRIPTYLINE [Concomitant]
     Dates: start: 20040205
  20. RANITIDINE [Concomitant]
     Dates: start: 20040205
  21. FLUOXETINE [Concomitant]
     Dates: start: 20040205
  22. METOCLOPRAMIDE [Concomitant]
     Dates: start: 20040219
  23. ZOFRAN [Concomitant]
     Dates: start: 20040420
  24. TIZANIDINE [Concomitant]
     Dates: start: 20040602
  25. ACTONEL [Concomitant]
     Dates: start: 20040722
  26. ZYPREXA [Concomitant]
     Dates: start: 20040721
  27. BACLOFEN [Concomitant]
     Dates: start: 20040909
  28. AVALIDE [Concomitant]
     Dosage: 150/12.5 MG
     Dates: start: 20041111
  29. PROMETHAZINE [Concomitant]
     Dates: start: 20050824
  30. AVELOX [Concomitant]
     Dates: start: 20050919
  31. CYCLOBENZAPRINE [Concomitant]
     Dates: start: 20050930
  32. MORPHINE SULFATE [Concomitant]
     Dates: start: 20051026
  33. CYMBALTA [Concomitant]
     Dates: start: 20051129
  34. PREDNISONE [Concomitant]
     Dates: start: 20060331
  35. SEROQUEL [Concomitant]
     Dates: start: 20061208
  36. DIAZEPAM [Concomitant]
     Dates: start: 20070811

REACTIONS (20)
  - Death [Fatal]
  - Spinal compression fracture [Unknown]
  - Convulsion [Unknown]
  - Abscess [Unknown]
  - Attention deficit/hyperactivity disorder [Unknown]
  - Social phobia [Unknown]
  - Fall [Unknown]
  - Osteoporosis [Unknown]
  - Bone density decreased [Unknown]
  - Bone disorder [Unknown]
  - Multiple fractures [Unknown]
  - Rib fracture [Unknown]
  - Chronic obstructive pulmonary disease [Unknown]
  - Androgen deficiency [Unknown]
  - Scoliosis [Unknown]
  - Lung disorder [Unknown]
  - Ankylosing spondylitis [Unknown]
  - Intervertebral disc degeneration [Unknown]
  - Osteopenia [Unknown]
  - Depression [Unknown]
